FAERS Safety Report 11966730 (Version 1)
Quarter: 2016Q1

REPORT INFORMATION
  Report Type: Report from Study
  Country: MX (occurrence: MX)
  Receive Date: 20160127
  Receipt Date: 20160127
  Transmission Date: 20160526
  Serious: Yes (Hospitalization, Other)
  Sender: FDA-Public Use
  Company Number: MX-BAYER-2016-015752

PATIENT
  Age: 35 Year
  Sex: Female
  Weight: 65 kg

DRUGS (5)
  1. BETAFERON [Suspect]
     Active Substance: INTERFERON BETA-1B
     Indication: MULTIPLE SCLEROSIS
     Dosage: 1 DF, QOD
     Route: 058
     Dates: start: 2004
  2. OMEPRAZOL [Concomitant]
     Active Substance: OMEPRAZOLE
     Dosage: UNK
  3. PARACETAMOL [Concomitant]
     Active Substance: ACETAMINOPHEN
     Dosage: UNK
  4. INTERFERON BETA-1B [INTERFERON BETA-1B] [Suspect]
     Active Substance: INTERFERON BETA-1B
     Dosage: UNK
  5. CARBAMAZEPINE. [Concomitant]
     Active Substance: CARBAMAZEPINE
     Dosage: UNK

REACTIONS (5)
  - Multiple sclerosis [None]
  - Malnutrition [None]
  - Product use issue [None]
  - Constipation [None]
  - Seizure [Recovered/Resolved]

NARRATIVE: CASE EVENT DATE: 201601
